FAERS Safety Report 14740499 (Version 2)
Quarter: 2018Q3

REPORT INFORMATION
  Report Type: Other
  Country: FR (occurrence: FR)
  Receive Date: 20180410
  Receipt Date: 20180718
  Transmission Date: 20181010
  Serious: Yes (Other)
  Sender: FDA-Public Use
  Company Number: FR-MACLEODS PHARMACEUTICALS US LTD-MAC2018012370

PATIENT

DRUGS (2)
  1. JINARC [Suspect]
     Active Substance: TOLVAPTAN
     Indication: CONGENITAL CYSTIC KIDNEY DISEASE
     Dosage: 60 MG, QD (45 MG IN MORNING AND 15 MG IN EVENING)
     Route: 048
     Dates: start: 20171211, end: 20180319
  2. IRBESARTAN. [Suspect]
     Active Substance: IRBESARTAN
     Indication: CONGENITAL CYSTIC KIDNEY DISEASE
     Dosage: 150 MG, QD
     Route: 048
     Dates: start: 20170731

REACTIONS (2)
  - Renal impairment [Not Recovered/Not Resolved]
  - Creatinine renal clearance increased [Recovering/Resolving]

NARRATIVE: CASE EVENT DATE: 20171226
